FAERS Safety Report 18703433 (Version 1)
Quarter: 2021Q1

REPORT INFORMATION
  Report Type: Spontaneous
  Country: US (occurrence: US)
  Receive Date: 20210105
  Receipt Date: 20210105
  Transmission Date: 20210419
  Serious: No
  Sender: FDA-Public Use
  Company Number: US-TEVA-2020-US-1864665

PATIENT
  Age: 83 Year
  Sex: Female

DRUGS (1)
  1. MUPIROCIN. [Suspect]
     Active Substance: MUPIROCIN
     Route: 065
     Dates: end: 20201228

REACTIONS (2)
  - Dizziness [Unknown]
  - Gingival bleeding [Unknown]
